FAERS Safety Report 4707810-1 (Version None)
Quarter: 2005Q2

REPORT INFORMATION
  Report Type: 
  Country: None (occurrence: None)
  Receive Date: 20050629
  Receipt Date: 20050316
  Transmission Date: 20051028
  Serious: No
  Sender: FDA-Public Use
  Company Number: 05P-163-0294194-00

PATIENT
  Age: 34 Year
  Sex: Male
  Weight: 97.5234 kg

DRUGS (5)
  1. HUMIRA [Suspect]
     Indication: RHEUMATOID ARTHRITIS
     Dosage: 40 MG, 1 IN 1 WK, SUBCUTANEOUS
     Route: 058
     Dates: start: 20040101
  2. VENLAFAXINE HCL [Concomitant]
  3. LANSOPRAZOLE [Concomitant]
  4. MULTI-VITAMINS [Concomitant]
  5. CALCIUM GLUCONATE [Concomitant]

REACTIONS (2)
  - HYPOAESTHESIA [None]
  - PARAESTHESIA [None]
